FAERS Safety Report 13890812 (Version 9)
Quarter: 2019Q2

REPORT INFORMATION
  Report Type: Spontaneous
  Country: CA (occurrence: CA)
  Receive Date: 20170822
  Receipt Date: 20190508
  Transmission Date: 20190711
  Serious: Yes (Hospitalization, Other)
  Sender: FDA-Public Use
  Company Number: CA-CELLTRION INC.-2017CA004234

PATIENT

DRUGS (19)
  1. INFLECTRA [Suspect]
     Active Substance: INFLIXIMAB-DYYB
     Dosage: 500 MG EVERY 0, 2, 6 WEEKS, THEN EVERY 8 WEEKS
     Route: 042
     Dates: start: 20160725, end: 20170613
  2. ROSUVASTATIN. [Concomitant]
     Active Substance: ROSUVASTATIN
     Indication: HYPERTENSION
     Dosage: 4 MG, 1X/DAY
     Route: 065
  3. INFLECTRA [Suspect]
     Active Substance: INFLIXIMAB-DYYB
     Dosage: 600 MG, EVERY 8 WEEKS
     Route: 042
     Dates: start: 20180719
  4. INFLECTRA [Suspect]
     Active Substance: INFLIXIMAB-DYYB
     Dosage: 600MG, EVERY 8 WEEKS
     Route: 042
     Dates: start: 20180719
  5. INFLECTRA [Suspect]
     Active Substance: INFLIXIMAB-DYYB
     Dosage: 600 MG, EVERY 8 WEEKS
     Route: 042
     Dates: start: 20180522
  6. INFLECTRA [Suspect]
     Active Substance: INFLIXIMAB-DYYB
     Dosage: 600 MG, (EVERY 8 WEEKS)
     Route: 042
     Dates: start: 20181108
  7. INFLECTRA [Suspect]
     Active Substance: INFLIXIMAB-DYYB
     Dosage: 600 MG, (EVERY 8 WEEKS)
     Route: 042
     Dates: start: 20190103
  8. METHOTREXATE SODIUM. [Suspect]
     Active Substance: METHOTREXATE SODIUM
     Indication: PRODUCT USED FOR UNKNOWN INDICATION
     Dosage: 12.5 MG, WEEKLY
     Route: 048
     Dates: start: 201702
  9. BENADRYL [Concomitant]
     Active Substance: DIPHENHYDRAMINE HYDROCHLORIDE
     Indication: PREMEDICATION
     Dosage: 50 MG, UNK
     Route: 048
  10. OXYCODONE [Concomitant]
     Active Substance: OXYCODONE
     Indication: PAIN
     Dosage: 10 MG, AS NEEDED (CURRENTLY 1 TAB ONCE DAILY)
     Route: 048
  11. LANTUS [Concomitant]
     Active Substance: INSULIN GLARGINE
     Dosage: UNK
     Route: 065
  12. INFLECTRA [Suspect]
     Active Substance: INFLIXIMAB-DYYB
     Indication: PSORIATIC ARTHROPATHY
     Dosage: 500 MG, (WEEKS 0, 2 AND 6, THEN EVERY 8 WEEKS FOR 12 MONTHS)
     Route: 042
     Dates: start: 20160706
  13. INFLECTRA [Suspect]
     Active Substance: INFLIXIMAB-DYYB
     Dosage: 600 MG, (EVERY 8 WEEKS)
     Route: 042
     Dates: start: 20170815
  14. JANUMET [Concomitant]
     Active Substance: METFORMIN HYDROCHLORIDE\SITAGLIPTIN PHOSPHATE
     Indication: DIABETES MELLITUS
     Dosage: 50 MG, 2X/DAY
     Route: 048
  15. CORTISONE [Concomitant]
     Active Substance: CORTISONE\HYDROCORTISONE
     Dosage: UNK UNK, AS NEEDED
     Route: 065
  16. INFLECTRA [Suspect]
     Active Substance: INFLIXIMAB-DYYB
     Dosage: 600 MG, (EVERY 8 WEEKS)
     Route: 042
     Dates: start: 20160725, end: 20170316
  17. INFLECTRA [Suspect]
     Active Substance: INFLIXIMAB-DYYB
     Dosage: 600 MG, (EVERY 8 WEEKS)
     Route: 042
     Dates: start: 20171207
  18. INFLECTRA [Suspect]
     Active Substance: INFLIXIMAB-DYYB
     Dosage: 600 MG, (EVERY 8 WEEKS)
     Route: 042
     Dates: start: 20180913
  19. INFLECTRA [Suspect]
     Active Substance: INFLIXIMAB-DYYB
     Dosage: 600 MG, (EVERY 8 WEEKS)
     Route: 042
     Dates: start: 20190425

REACTIONS (15)
  - Blood pressure fluctuation [Unknown]
  - Sinusitis [Recovered/Resolved]
  - Nausea [Recovered/Resolved]
  - Arthralgia [Unknown]
  - Weight increased [Unknown]
  - Electrocardiogram abnormal [Unknown]
  - Orthostatic hypotension [Unknown]
  - Blood pressure increased [Unknown]
  - Chemical burns of eye [Unknown]
  - Heart rate decreased [Unknown]
  - Pruritus [Recovered/Resolved]
  - Flushing [Recovered/Resolved]
  - Body temperature decreased [Unknown]
  - Malaise [Recovered/Resolved]
  - Weight decreased [Unknown]

NARRATIVE: CASE EVENT DATE: 2017
